FAERS Safety Report 5531931-7 (Version None)
Quarter: 2007Q4

REPORT INFORMATION
  Report Type: 
  Country: None (occurrence: None)
  Receive Date: 20071203
  Receipt Date: 20071127
  Transmission Date: 20080405
  Serious: Yes (Hospitalization, Disabling)
  Sender: FDA-Public Use
  Company Number: US-ROCHE-385948

PATIENT
  Age: 16 Year
  Sex: Male
  Weight: 68.5 kg

DRUGS (1)
  1. ACCUTANE [Suspect]
     Indication: ACNE
     Route: 048
     Dates: start: 19890516, end: 19891006

REACTIONS (16)
  - ABDOMINAL PAIN [None]
  - ANAEMIA [None]
  - BACK PAIN [None]
  - COLITIS [None]
  - COLITIS ULCERATIVE [None]
  - GASTROENTERITIS [None]
  - GASTROINTESTINAL DISORDER [None]
  - HAEMATOCHEZIA [None]
  - INFLAMMATORY BOWEL DISEASE [None]
  - INTESTINAL HAEMORRHAGE [None]
  - IRRITABLE BOWEL SYNDROME [None]
  - MEGACOLON [None]
  - MULTI-ORGAN DISORDER [None]
  - POUCHITIS [None]
  - RECTAL HAEMORRHAGE [None]
  - VOMITING [None]
